FAERS Safety Report 7818394-3 (Version None)
Quarter: 2011Q4

REPORT INFORMATION
  Report Type: 
  Country: None (occurrence: None)
  Receive Date: 20111017
  Receipt Date: 20111007
  Transmission Date: 20120403
  Serious: Yes (Hospitalization)
  Sender: FDA-Public Use
  Company Number: US-BAXTER-2011BH030341

PATIENT
  Age: 47 Year
  Sex: Female

DRUGS (2)
  1. DIANEAL [Suspect]
     Indication: PERITONEAL DIALYSIS
     Route: 033
  2. UNSPECIFIED CONTRAINDICATING MEDICATIONS [Suspect]
     Indication: PRODUCT USED FOR UNKNOWN INDICATION
     Route: 065

REACTIONS (3)
  - DEVICE OCCLUSION [None]
  - LABELLED DRUG-DRUG INTERACTION MEDICATION ERROR [None]
  - MYOCARDIAL INFARCTION [None]
